FAERS Safety Report 4873328-9 (Version None)
Quarter: 2006Q1

REPORT INFORMATION
  Report Type: 
  Country: None (occurrence: None)
  Receive Date: 20060104
  Receipt Date: 20051228
  Transmission Date: 20060701
  Serious: Yes (Life-Threatening, Hospitalization)
  Sender: FDA-Public Use
  Company Number: DEU-2005-0001900

PATIENT
  Age: 68 Year
  Sex: Female
  Weight: 113 kg

DRUGS (16)
  1. MORPHINE SULFATE [Suspect]
     Indication: SCIATICA
     Dosage: 90 MG, BID, ORAL
     Route: 048
     Dates: start: 20051104
  2. MARCUMAR [Concomitant]
  3. LACTULOSE [Concomitant]
  4. HALDOL [Concomitant]
  5. UNAT (TORASEMIDE) [Concomitant]
  6. AMINEURIN (AMITRIPTYLINE HYDROCHLORIDE) [Concomitant]
  7. ATACAND [Concomitant]
  8. NORVASC [Concomitant]
  9. AMARYL [Concomitant]
  10. ALLOPURINOL [Concomitant]
  11. PANTOPRAZOLE SODIUM [Concomitant]
  12. METAMIZOL SODIUM [Concomitant]
  13. GABAPENTIN [Concomitant]
  14. ANTI-ASTHMATICS [Concomitant]
  15. SALMETEROL XINAFOATE (SALMETEROL XINAFOATE) [Concomitant]
  16. OXYGEN (OXYGEN) [Concomitant]

REACTIONS (4)
  - DRUG TOXICITY [None]
  - HYPOPNOEA [None]
  - IATROGENIC INJURY [None]
  - SOMNOLENCE [None]
